FAERS Safety Report 4349923-2 (Version None)
Quarter: 2004Q2

REPORT INFORMATION
  Report Type: 
  Country: None (occurrence: None)
  Receive Date: 20040428
  Receipt Date: 20040428
  Transmission Date: 20050107
  Serious: Yes (Death, Life-Threatening)
  Sender: FDA-Public Use
  Company Number: None

PATIENT
  Age: 38 Year
  Sex: Male

DRUGS (18)
  1. CLOZARIL [Suspect]
     Indication: MANIA
     Dosage: 400 MG DAILY
  2. PROZAC [Suspect]
     Indication: DEPRESSION
     Dosage: 40 MG DAILY
  3. EFFEXOR XR [Suspect]
     Indication: DEPRESSION
     Dosage: 300 MG DAILY
  4. BENADRYL [Suspect]
     Dosage: 100 MG DAILY, DIVIDED
  5. LITHIUM CARBONATE [Concomitant]
  6. SYNTHROID [Concomitant]
  7. DDAVP [Concomitant]
  8. DETROL LA [Concomitant]
  9. ZANTAC [Concomitant]
  10. FLOMAX [Concomitant]
  11. ATIVAN [Concomitant]
  12. GEMFIBROZIL [Concomitant]
  13. VITAMIN E [Concomitant]
  14. MULTI-VITAMIN [Concomitant]
  15. MIRALAX [Concomitant]
  16. COLACE [Concomitant]
  17. FIBERCON [Concomitant]
  18. LEXATIVES [Concomitant]

REACTIONS (6)
  - ASTHENIA [None]
  - COMMUNICATION DISORDER [None]
  - CONVULSION [None]
  - FALL [None]
  - MEMORY IMPAIRMENT [None]
  - SUDDEN DEATH [None]
